FAERS Safety Report 7532903-3 (Version None)
Quarter: 2011Q2

REPORT INFORMATION
  Report Type: 
  Country: None (occurrence: None)
  Receive Date: 20110608
  Receipt Date: 20110602
  Transmission Date: 20111010
  Serious: Yes (Death)
  Sender: FDA-Public Use
  Company Number: US-CELGENEUS-163-21880-11043061

PATIENT
  Sex: Female

DRUGS (3)
  1. ACYCLOVIR [Concomitant]
     Indication: PROPHYLAXIS
  2. ACYCLOVIR [Concomitant]
     Dosage: 200 MILLIGRAM
     Route: 065
     Dates: start: 20110308
  3. REVLIMID [Suspect]
     Indication: MULTIPLE MYELOMA
     Dosage: 5 MILLIGRAM
     Route: 048
     Dates: start: 20110301, end: 20110401

REACTIONS (1)
  - HEPATIC FAILURE [None]
